FAERS Safety Report 7548924-0 (Version None)
Quarter: 2011Q2

REPORT INFORMATION
  Report Type: 
  Country: None (occurrence: None)
  Receive Date: 20110615
  Receipt Date: 20110607
  Transmission Date: 20111010
  Serious: Yes (Other)
  Sender: FDA-Public Use
  Company Number: US-ROCHE-735454

PATIENT
  Sex: Female
  Weight: 79.4 kg

DRUGS (3)
  1. ACCUTANE [Suspect]
     Indication: ACNE
     Route: 065
     Dates: start: 19940101
  2. ACCUTANE [Suspect]
     Route: 065
     Dates: start: 19950101, end: 19950401
  3. BIRTH CONTROL PILL [Concomitant]

REACTIONS (8)
  - COLITIS ULCERATIVE [None]
  - NAUSEA [None]
  - HAEMORRHOIDS [None]
  - ANXIETY [None]
  - POLYP COLORECTAL [None]
  - RECTAL HAEMORRHAGE [None]
  - ABDOMINAL PAIN [None]
  - DIVERTICULUM [None]
